FAERS Safety Report 20048490 (Version 7)
Quarter: 2022Q4

REPORT INFORMATION
  Report Type: Spontaneous
  Country: US (occurrence: US)
  Receive Date: 20211109
  Receipt Date: 20221220
  Transmission Date: 20230113
  Serious: Yes (Other)
  Sender: FDA-Public Use
  Company Number: US-PFIZER INC-202101488294

PATIENT
  Age: 60 Year
  Sex: Female

DRUGS (5)
  1. XELJANZ XR [Suspect]
     Active Substance: TOFACITINIB CITRATE
     Indication: Rheumatoid arthritis
     Dosage: 11 MG
  2. XELJANZ XR [Suspect]
     Active Substance: TOFACITINIB CITRATE
     Dosage: 11 MG, DAILY
     Route: 048
     Dates: start: 20211027, end: 202210
  3. PREDNISONE [Concomitant]
     Active Substance: PREDNISONE
     Dosage: UNK, AS NEEDED
  4. NORCO [Concomitant]
     Active Substance: ACETAMINOPHEN\HYDROCODONE BITARTRATE
     Dosage: UNK,AS NEEDED
  5. METHOTREXATE [Concomitant]
     Active Substance: METHOTREXATE
     Dosage: UNK

REACTIONS (29)
  - Sinusitis [Recovered/Resolved]
  - Condition aggravated [Not Recovered/Not Resolved]
  - Insomnia [Unknown]
  - Headache [Unknown]
  - Eye inflammation [Unknown]
  - Rash [Unknown]
  - Pain in extremity [Unknown]
  - Muscular weakness [Unknown]
  - Inflammation [Unknown]
  - Trigger finger [Unknown]
  - Arthralgia [Unknown]
  - Skin lesion [Unknown]
  - Rash macular [Unknown]
  - Abdominal pain [Unknown]
  - Rotator cuff syndrome [Unknown]
  - Arthropathy [Unknown]
  - Epicondylitis [Unknown]
  - Disease recurrence [Unknown]
  - Product dose omission in error [Unknown]
  - Intentional dose omission [Unknown]
  - Dizziness [Not Recovered/Not Resolved]
  - Fall [Unknown]
  - Arthralgia [Unknown]
  - Neck pain [Unknown]
  - Bone deformity [Not Recovered/Not Resolved]
  - Dizziness postural [Not Recovered/Not Resolved]
  - Sinus headache [Unknown]
  - Muscle spasms [Unknown]
  - Thyroid mass [Unknown]

NARRATIVE: CASE EVENT DATE: 20210101
